FAERS Safety Report 11772806 (Version 1)
Quarter: 2015Q4

REPORT INFORMATION
  Report Type: Spontaneous
  Country: US (occurrence: US)
  Receive Date: 20151124
  Receipt Date: 20151124
  Transmission Date: 20160304
  Serious: Yes (Hospitalization)
  Sender: FDA-Public Use
  Company Number: US-MALLINCKRODT-T201503461

PATIENT
  Age: 10 Year
  Sex: Male

DRUGS (2)
  1. GABLOFEN [Suspect]
     Active Substance: BACLOFEN
     Indication: MUSCLE SPASTICITY
     Dosage: 1003.4 MCG/DAY
     Route: 037
  2. GABLOFEN [Suspect]
     Active Substance: BACLOFEN
     Dosage: 18.3 MCG/HR (439.2 MCG/DAY)
     Route: 037

REACTIONS (2)
  - Device issue [Recovered/Resolved]
  - Drug withdrawal syndrome [Recovered/Resolved]

NARRATIVE: CASE EVENT DATE: 20141105
